FAERS Safety Report 26037859 (Version 1)
Quarter: 2025Q4

REPORT INFORMATION
  Report Type: Spontaneous
  Country: US (occurrence: US)
  Receive Date: 20251112
  Receipt Date: 20251112
  Transmission Date: 20260118
  Serious: No
  Sender: BRACCO
  Company Number: US-BRACCO-2025US04813

PATIENT
  Age: 23 Year
  Sex: Male

DRUGS (3)
  1. LUMASON [Suspect]
     Active Substance: SULFUR HEXAFLUORIDE
     Indication: Echocardiogram
     Dosage: 2ML VIA 22G PERIPHERAL INTRAVENOUS (PIV) TO RIGHT ANTECUBITAL (AC)
     Dates: start: 20250714, end: 20250714
  2. LUMASON [Suspect]
     Active Substance: SULFUR HEXAFLUORIDE
     Indication: Echocardiogram
     Dosage: 2ML VIA 22G PERIPHERAL INTRAVENOUS (PIV) TO RIGHT ANTECUBITAL (AC)
     Dates: start: 20250714, end: 20250714
  3. LUMASON [Suspect]
     Active Substance: SULFUR HEXAFLUORIDE
     Indication: Echocardiogram
     Dosage: 2ML VIA 22G PERIPHERAL INTRAVENOUS (PIV) TO RIGHT ANTECUBITAL (AC)
     Dates: start: 20250714, end: 20250714

REACTIONS (3)
  - Arthralgia [Recovered/Resolved]
  - Dizziness [Recovered/Resolved]
  - Hyperhidrosis [Recovered/Resolved]

NARRATIVE: CASE EVENT DATE: 20250714
